FAERS Safety Report 13490303 (Version 2)
Quarter: 2017Q2

REPORT INFORMATION
  Report Type: Spontaneous
  Country: US (occurrence: US)
  Receive Date: 20170427
  Receipt Date: 20170518
  Transmission Date: 20170830
  Serious: No
  Sender: FDA-Public Use
  Company Number: US-PFIZER INC-2017181985

PATIENT
  Age: 69 Year
  Sex: Female
  Weight: 61.22 kg

DRUGS (2)
  1. SILVER SULFADIAZENE [Suspect]
     Active Substance: SILVER SULFADIAZINE
     Indication: WOUND
     Dosage: UNK
     Route: 061
  2. COLLAGENASE SANTYL [Suspect]
     Active Substance: COLLAGENASE CLOSTRIDIUM HISTOLYTICUM
     Indication: WOUND
     Dosage: UNK, DAILY
     Route: 061

REACTIONS (1)
  - Application site discolouration [Recovered/Resolved]

NARRATIVE: CASE EVENT DATE: 20170406
